FAERS Safety Report 9157812 (Version 1)
Quarter: 2013Q1

REPORT INFORMATION
  Report Type: Report from Study
  Country: US (occurrence: US)
  Receive Date: 20130312
  Receipt Date: 20130312
  Transmission Date: 20140127
  Serious: No
  Sender: FDA-Public Use
  Company Number: US-009507513-1303USA004367

PATIENT
  Sex: Male
  Weight: 83.9 kg

DRUGS (8)
  1. VICTRELIS [Suspect]
     Indication: PRODUCT USED FOR UNKNOWN INDICATION
     Dosage: 200 MG, UNK
  2. PEGINTERFERON ALFA-2A [Suspect]
     Indication: PRODUCT USED FOR UNKNOWN INDICATION
     Dosage: 4 DF, TID
     Route: 048
  3. RIBAPAK [Suspect]
     Indication: PRODUCT USED FOR UNKNOWN INDICATION
     Dosage: UNK, QD
  4. TYLENOL [Concomitant]
  5. FINASTERIDE [Concomitant]
  6. CHONDROITIN SULFATE SODIUM (+) GLUCOSAMINE SULFATE [Concomitant]
  7. OMEGA-3 MARINE TRIGLYCERIDES [Concomitant]
  8. ASCORBIC ACID [Concomitant]

REACTIONS (3)
  - Influenza like illness [Unknown]
  - Diarrhoea [Unknown]
  - Irritability [Unknown]
